FAERS Safety Report 7180753-2 (Version None)
Quarter: 2010Q4

REPORT INFORMATION
  Report Type: 
  Country: None (occurrence: None)
  Receive Date: 20101221
  Receipt Date: 20101217
  Transmission Date: 20110411
  Serious: Yes (Hospitalization)
  Sender: FDA-Public Use
  Company Number: US-RB-015066-10

PATIENT
  Age: 33 Year
  Sex: Female

DRUGS (1)
  1. SUBOXONE [Suspect]
     Indication: PRODUCT USED FOR UNKNOWN INDICATION
     Dosage: UNKNOWN DOISNG DETAILS
     Route: 065

REACTIONS (4)
  - BREAST DISORDER [None]
  - DIARRHOEA [None]
  - EMOTIONAL DISORDER [None]
  - TREMOR [None]
